FAERS Safety Report 4665905-5 (Version None)
Quarter: 2005Q2

REPORT INFORMATION
  Report Type: 
  Country: None (occurrence: None)
  Receive Date: 20050516
  Receipt Date: 20050516
  Transmission Date: 20051028
  Serious: Yes (Life-Threatening)
  Sender: FDA-Public Use
  Company Number: None

PATIENT
  Age: 2 Year
  Sex: Male
  Weight: 11 kg

DRUGS (4)
  1. FLEET PHOSPHO-SODA FLEET [Suspect]
     Indication: HYPERPHOSPHATAEMIA
     Dosage: 1/2 BOTTLE QD OTHR
     Dates: start: 20050101, end: 20050303
  2. IRON SACCHARATE [Concomitant]
  3. EPREX [Concomitant]
  4. VIT D [Concomitant]

REACTIONS (10)
  - ACIDOSIS [None]
  - BLOOD CREATININE INCREASED [None]
  - BLOOD ELECTROLYTES ABNORMAL [None]
  - HYPERKALAEMIA [None]
  - HYPERPHOSPHATAEMIA [None]
  - IRRITABILITY [None]
  - MUSCULOSKELETAL STIFFNESS [None]
  - PAIN IN EXTREMITY [None]
  - TACHYCARDIA [None]
  - TETANY [None]
